FAERS Safety Report 24627203 (Version 2)
Quarter: 2025Q1

REPORT INFORMATION
  Report Type: Report from Study
  Country: US (occurrence: US)
  Receive Date: 20241116
  Receipt Date: 20250120
  Transmission Date: 20250408
  Serious: Yes (Hospitalization, Other)
  Sender: ROCHE
  Company Number: US-ROCHE-10000131195

PATIENT
  Age: 67 Year
  Sex: Female
  Weight: 104.78 kg

DRUGS (2)
  1. COTELLIC [Suspect]
     Active Substance: COBIMETINIB FUMARATE
     Indication: Intraductal proliferative breast lesion
     Route: 048
  2. COTELLIC [Suspect]
     Active Substance: COBIMETINIB FUMARATE
     Indication: Rosai-Dorfman syndrome

REACTIONS (3)
  - Pulmonary thrombosis [Recovered/Resolved]
  - Off label use [Unknown]
  - Osteomyelitis [Unknown]

NARRATIVE: CASE EVENT DATE: 20241108
